FAERS Safety Report 14170384 (Version 3)
Quarter: 2018Q2

REPORT INFORMATION
  Report Type: Spontaneous
  Country: ES (occurrence: ES)
  Receive Date: 20171108
  Receipt Date: 20180424
  Transmission Date: 20180711
  Serious: Yes (Other)
  Sender: FDA-Public Use
  Company Number: ES-B.I. PHARMACEUTICALS,INC./RIDGEFIELD-2017-BI-054922

PATIENT
  Age: 74 Year
  Sex: Male
  Weight: 92 kg

DRUGS (1)
  1. JARDIANCE [Suspect]
     Active Substance: EMPAGLIFLOZIN
     Indication: PRODUCT USED FOR UNKNOWN INDICATION
     Dosage: DOSIS :10 MILIGRAMO?NUMERO DE UNIDADES DE FRECUENCIA : 1 D?A
     Route: 048
     Dates: start: 201707

REACTIONS (3)
  - Pollakiuria [Unknown]
  - Candida infection [Unknown]
  - Thirst [Unknown]

NARRATIVE: CASE EVENT DATE: 201709
